FAERS Safety Report 25684245 (Version 2)
Quarter: 2025Q4

REPORT INFORMATION
  Report Type: Spontaneous
  Country: US (occurrence: US)
  Receive Date: 20250815
  Receipt Date: 20251003
  Transmission Date: 20260117
  Serious: Yes (Disabling, Other)
  Sender: ALEXION PHARMACEUTICALS
  Company Number: US-AstraZeneca-CH-00930211A

PATIENT
  Sex: Female

DRUGS (2)
  1. SAPHNELO [Suspect]
     Active Substance: ANIFROLUMAB-FNIA
     Indication: Systemic lupus erythematosus
     Route: 065
     Dates: start: 2025, end: 202508
  2. BENLYSTA [Concomitant]
     Active Substance: BELIMUMAB
     Route: 065

REACTIONS (23)
  - Gastrointestinal disorder [Unknown]
  - Systemic lupus erythematosus [Unknown]
  - Neuropathy peripheral [Unknown]
  - Ill-defined disorder [Unknown]
  - Rash [Unknown]
  - Gastrointestinal disorder [Unknown]
  - Fall [Unknown]
  - No adverse event [Unknown]
  - Illness [Unknown]
  - Arthralgia [Unknown]
  - Gait disturbance [Unknown]
  - Pain in extremity [Unknown]
  - Mobility decreased [Unknown]
  - Quality of life decreased [Unknown]
  - Hypoaesthesia [Unknown]
  - Arthralgia [Unknown]
  - Hyperhidrosis [Unknown]
  - Pyrexia [Unknown]
  - Sleep disorder [Unknown]
  - Rash [Unknown]
  - Dry mouth [Unknown]
  - Tremor [Unknown]
  - Raynaud^s phenomenon [Unknown]
